FAERS Safety Report 18988346 (Version 3)
Quarter: 2021Q2

REPORT INFORMATION
  Report Type: Spontaneous
  Country: JP (occurrence: JP)
  Receive Date: 20210309
  Receipt Date: 20210428
  Transmission Date: 20210717
  Serious: Yes (Other)
  Sender: FDA-Public Use
  Company Number: JP-GLAXOSMITHKLINE-JP2021057449

PATIENT
  Age: 27 Year
  Sex: Female

DRUGS (4)
  1. ALLERMIST [Suspect]
     Active Substance: FLUTICASONE FUROATE
     Indication: RHINITIS ALLERGIC
     Dosage: 110 ?G, QD
     Route: 045
     Dates: start: 20210225, end: 20210225
  2. BILANOA TABLET [Concomitant]
     Indication: RHINITIS ALLERGIC
     Dosage: 20 MG, 1D
     Route: 048
  3. ALESION OPHTHALMIC SOLUTION 0.05% [Concomitant]
     Indication: SEASONAL ALLERGY
     Dosage: UNK, QID
     Route: 047
  4. MONTELUKAST SODIUM TABLET [Concomitant]
     Active Substance: MONTELUKAST SODIUM
     Indication: RHINITIS ALLERGIC
     Dosage: 10 MG, 1D
     Route: 048

REACTIONS (3)
  - Malaise [Recovered/Resolved]
  - Secondary adrenocortical insufficiency [Recovered/Resolved]
  - Pyrexia [Recovered/Resolved]

NARRATIVE: CASE EVENT DATE: 20210225
